FAERS Safety Report 8949408 (Version 3)
Quarter: 2013Q2

REPORT INFORMATION
  Report Type: Spontaneous
  Country: FR (occurrence: FR)
  Receive Date: 20121206
  Receipt Date: 20130611
  Transmission Date: 20140414
  Serious: Yes (Death)
  Sender: FDA-Public Use
  Company Number: FR-ELI_LILLY_AND_COMPANY-FR201211008534

PATIENT
  Age: 62 Year
  Sex: Male
  Weight: 100 kg

DRUGS (5)
  1. ZYPADHERA [Suspect]
     Indication: SCHIZOPHRENIA
     Dosage: 405 MG, MONTHLY (1/M)
     Route: 030
     Dates: start: 20121023
  2. ZYPREXA [Suspect]
     Indication: SCHIZOPHRENIA
     Dosage: 20 MG, QD
     Dates: start: 2011, end: 20121023
  3. ZYPREXA [Suspect]
     Dosage: 30 MG, QD
     Route: 048
     Dates: start: 2011, end: 20121023
  4. VALIUM [Concomitant]
     Indication: ANXIETY
     Dosage: 10 MG, QD
     Dates: start: 20121008
  5. LOXAPAC [Concomitant]
     Indication: AGITATION
     Dosage: 25 MG, QD
     Dates: start: 20121008

REACTIONS (5)
  - Cardiac arrest [Fatal]
  - Aspiration [Fatal]
  - Prescribed overdose [Recovered/Resolved]
  - Agitation [Unknown]
  - Blood pressure increased [Unknown]
